FAERS Safety Report 8268095-5 (Version None)
Quarter: 2012Q2

REPORT INFORMATION
  Report Type: 
  Country: None (occurrence: None)
  Receive Date: 20120409
  Receipt Date: 20120403
  Transmission Date: 20120825
  Serious: Yes (Life-Threatening, Hospitalization)
  Sender: FDA-Public Use
  Company Number: IT-ASTRAZENECA-2012SE20806

PATIENT
  Age: 30612 Day
  Sex: Female

DRUGS (7)
  1. TENORMIN [Suspect]
     Indication: ATRIAL FIBRILLATION
     Route: 040
     Dates: start: 20120203
  2. LASIX [Concomitant]
  3. LEVOTHYROXINE SODIUM [Concomitant]
  4. BISOPROLOL FUMARATE [Concomitant]
  5. PROPAFENONE HCL [Suspect]
     Indication: ATRIAL FIBRILLATION
     Route: 040
     Dates: start: 20120203
  6. RAMIPRIL [Concomitant]
     Route: 048
  7. LORAZEPAM [Concomitant]

REACTIONS (3)
  - ELECTROCARDIOGRAM REPOLARISATION ABNORMALITY [None]
  - CARDIAC ARREST [None]
  - NODAL ARRHYTHMIA [None]
